FAERS Safety Report 13628303 (Version 2)
Quarter: 2018Q3

REPORT INFORMATION
  Report Type: Report from Study
  Country: US (occurrence: US)
  Receive Date: 20170607
  Receipt Date: 20180705
  Transmission Date: 20181010
  Serious: Yes (Other)
  Sender: FDA-Public Use
  Company Number: US-JNJFOC-20170602917

PATIENT
  Age: 7 Year
  Sex: Male
  Weight: 36.8 kg

DRUGS (9)
  1. ZYRTEC [Concomitant]
     Active Substance: CETIRIZINE HYDROCHLORIDE
     Route: 048
     Dates: start: 20180119
  2. BENADRYL [Concomitant]
     Active Substance: DIPHENHYDRAMINE HYDROCHLORIDE
     Route: 048
     Dates: start: 20170208
  3. TYLENOL [Concomitant]
     Active Substance: ACETAMINOPHEN
     Route: 048
     Dates: start: 20180119
  4. REMICADE [Suspect]
     Active Substance: INFLIXIMAB
     Indication: CROHN^S DISEASE
     Route: 042
     Dates: start: 20180119
  5. LIDOCAINE. [Concomitant]
     Active Substance: LIDOCAINE
     Route: 023
     Dates: start: 20180119
  6. REMICADE [Suspect]
     Active Substance: INFLIXIMAB
     Indication: CROHN^S DISEASE
     Route: 042
  7. REMICADE [Suspect]
     Active Substance: INFLIXIMAB
     Indication: CROHN^S DISEASE
     Dosage: IN SODIUM CHLORIDE 0.9 %AT THE INFUSION RATE OF 96.3 AND 133 ML/HR
     Route: 042
     Dates: start: 20170208
  8. LIDOCAINE. [Concomitant]
     Active Substance: LIDOCAINE
     Route: 023
     Dates: start: 20170208
  9. SOLU?MEDROL [Concomitant]
     Active Substance: METHYLPREDNISOLONE SODIUM SUCCINATE
     Route: 042
     Dates: start: 20170208

REACTIONS (6)
  - Adenoidal hypertrophy [Unknown]
  - Hand fracture [Unknown]
  - Hypotension [Recovering/Resolving]
  - Body mass index decreased [Recovering/Resolving]
  - Atypical mycobacterial infection [Unknown]
  - Rhinitis [Unknown]

NARRATIVE: CASE EVENT DATE: 20111101
